FAERS Safety Report 9193771 (Version 1)
Quarter: 2013Q1

REPORT INFORMATION
  Report Type: Spontaneous
  Country: FR (occurrence: FR)
  Receive Date: 20130327
  Receipt Date: 20130327
  Transmission Date: 20140127
  Serious: Yes (Death, Hospitalization)
  Sender: FDA-Public Use
  Company Number: FR-PFIZER INC-2013094066

PATIENT
  Age: 37 Year
  Sex: Female
  Weight: 75 kg

DRUGS (11)
  1. ADEPAL [Suspect]
     Indication: CONTRACEPTION
     Route: 048
  2. ATARAX [Concomitant]
     Dosage: 1 DF, 3X/DAY
  3. DIPIPERON [Concomitant]
     Dosage: 25 MG, 4X/DAY
  4. INIPOMP [Concomitant]
     Dosage: 20 MG, 1X/DAY
  5. NEURONTIN [Concomitant]
     Dosage: 100 MG, 2X/DAY
  6. NICOPATCH [Concomitant]
     Dosage: 21 MG, 1X/DAY
  7. NORSET [Concomitant]
     Dosage: 45 MG, 1X/DAY
  8. PREVISCAN [Concomitant]
     Dosage: 20 MG, 1X/DAY
  9. TIAPRIDAL [Concomitant]
     Dosage: 100 MG, 3X/DAY
  10. DAFALGAN [Concomitant]
     Dosage: 1000 MG, 3X/DAY
  11. KARDEGIC [Concomitant]
     Dosage: 75 MG, 1X/DAY

REACTIONS (1)
  - Cerebral infarction [Fatal]
